FAERS Safety Report 14619413 (Version 1)
Quarter: 2018Q1

REPORT INFORMATION
  Report Type: Spontaneous
  Country: US (occurrence: US)
  Receive Date: 20180309
  Receipt Date: 20180309
  Transmission Date: 20180509
  Serious: Yes (Hospitalization)
  Sender: FDA-Public Use
  Company Number: None

PATIENT
  Age: 53 Year
  Sex: Female
  Weight: 85.5 kg

DRUGS (11)
  1. VORAPAXAR [Suspect]
     Active Substance: VORAPAXAR
     Indication: CORONARY ARTERY DISEASE
  2. REMERON [Concomitant]
     Active Substance: MIRTAZAPINE
     Dates: start: 20180122
  3. ABILIFY [Concomitant]
     Active Substance: ARIPIPRAZOLE
     Dates: start: 20180122
  4. ASPIRIN. [Concomitant]
     Active Substance: ASPIRIN
     Dates: start: 20180122
  5. LASIX [Concomitant]
     Active Substance: FUROSEMIDE
     Dates: start: 20180122
  6. LIPITOR [Concomitant]
     Active Substance: ATORVASTATIN CALCIUM
     Dates: start: 20180122
  7. CYMBALTA [Concomitant]
     Active Substance: DULOXETINE HYDROCHLORIDE
     Dates: start: 20180122
  8. COZAAR [Concomitant]
     Active Substance: LOSARTAN POTASSIUM
     Dates: start: 20180203
  9. COREG [Concomitant]
     Active Substance: CARVEDILOL
     Dates: start: 20180208
  10. METFORMIN [Concomitant]
     Active Substance: METFORMIN HYDROCHLORIDE
     Dates: start: 20180205
  11. BRILINTA [Concomitant]
     Active Substance: TICAGRELOR
     Dates: start: 20180122

REACTIONS (1)
  - Dyspnoea [None]

NARRATIVE: CASE EVENT DATE: 20180308
